FAERS Safety Report 21920396 (Version 1)
Quarter: 2023Q1

REPORT INFORMATION
  Report Type: Spontaneous
  Country: US (occurrence: None)
  Receive Date: 20230126
  Receipt Date: 20230126
  Transmission Date: 20230417
  Serious: Yes (Hospitalization)
  Sender: FDA-Public Use
  Company Number: None

PATIENT
  Age: 68 Year
  Sex: Male

DRUGS (1)
  1. LENALIDOMIDE [Suspect]
     Active Substance: LENALIDOMIDE
     Indication: Plasma cell myeloma
     Dosage: 25MG QD ORAL
     Route: 048
     Dates: start: 20230105

REACTIONS (8)
  - Pyrexia [None]
  - Chills [None]
  - Asthenia [None]
  - Leukocytosis [None]
  - Pulmonary congestion [None]
  - Cholestasis [None]
  - Infection [None]
  - Haemoglobin urine present [None]

NARRATIVE: CASE EVENT DATE: 20230111
